FAERS Safety Report 26003632 (Version 1)
Quarter: 2025Q4

REPORT INFORMATION
  Report Type: Spontaneous
  Country: US (occurrence: US)
  Receive Date: 20251106
  Receipt Date: 20251106
  Transmission Date: 20260117
  Serious: No
  Sender: SANOFI AVENTIS
  Company Number: US-SA-2025SA323077

PATIENT
  Age: 66 Year
  Sex: Female

DRUGS (16)
  1. DUPIXENT [Suspect]
     Active Substance: DUPILUMAB
     Indication: Dermatitis atopic
     Dosage: 300 MG, QOW
     Route: 058
     Dates: start: 20231110
  2. RECLAST [Concomitant]
     Active Substance: ZOLEDRONIC ACID
     Dosage: UNK
  3. PROGESTERONE [Concomitant]
     Active Substance: PROGESTERONE
     Dosage: UNK
  4. TIZANIDINE [Concomitant]
     Active Substance: TIZANIDINE
     Dosage: UNK
  5. MINOCYCLINE [Concomitant]
     Active Substance: MINOCYCLINE HYDROCHLORIDE
     Dosage: UNK
  6. MELOXICAM [Concomitant]
     Active Substance: MELOXICAM
     Dosage: UNK
  7. SPIRONOLACTONE [Concomitant]
     Active Substance: SPIRONOLACTONE
     Dosage: UNK
  8. ELIQUIS [Concomitant]
     Active Substance: APIXABAN
     Dosage: UNK
  9. Shen gu [Concomitant]
     Dosage: UNK
  10. MAGNESIUM [Concomitant]
     Active Substance: MAGNESIUM
     Dosage: UNK
  11. GABAPENTIN [Concomitant]
     Active Substance: GABAPENTIN
     Dosage: UNK
  12. TYLENOL [Concomitant]
     Active Substance: ACETAMINOPHEN
     Dosage: UNK
  13. CYCLOBENZAPRINE [Concomitant]
     Active Substance: CYCLOBENZAPRINE
     Dosage: UNK
  14. CLARITIN-D NOS [Concomitant]
     Active Substance: LORATADINE\PSEUDOEPHEDRINE SULFATE
     Dosage: UNK
  15. SINGULAIR [Concomitant]
     Active Substance: MONTELUKAST SODIUM
     Dosage: UNK
  16. ESTRADIOL [Concomitant]
     Active Substance: ESTRADIOL
     Dosage: UNK

REACTIONS (2)
  - Eczema [Unknown]
  - Product dose omission issue [Unknown]
